FAERS Safety Report 17025269 (Version 3)
Quarter: 2020Q1

REPORT INFORMATION
  Report Type: Spontaneous
  Country: US (occurrence: US)
  Receive Date: 20191113
  Receipt Date: 20200102
  Transmission Date: 20200409
  Serious: Yes (Other)
  Sender: FDA-Public Use
  Company Number: US-PFIZER INC-2019485987

PATIENT
  Age: 77 Year
  Sex: Female
  Weight: 198 kg

DRUGS (2)
  1. IBRANCE [Suspect]
     Active Substance: PALBOCICLIB
     Dosage: 100 MG, CYCLIC(D 1-21 Q 28 DAYS)
     Route: 048
     Dates: start: 2019
  2. IBRANCE [Suspect]
     Active Substance: PALBOCICLIB
     Indication: BREAST CANCER METASTATIC
     Dosage: 125 MG, CYCLIC (DAY 1-21 Q(EVERY) 28 DAYS)
     Route: 048
     Dates: start: 201909, end: 2019

REACTIONS (11)
  - Blood pressure decreased [Unknown]
  - Abdominal pain [Unknown]
  - Asthenia [Unknown]
  - Hyperhidrosis [Unknown]
  - Clostridium difficile infection [Unknown]
  - Diarrhoea [Unknown]
  - Gingival discolouration [Unknown]
  - Constipation [Unknown]
  - Pain [Unknown]
  - Hip fracture [Unknown]
  - Confusional state [Unknown]

NARRATIVE: CASE EVENT DATE: 2019
